FAERS Safety Report 7268078-8 (Version None)
Quarter: 2011Q1

REPORT INFORMATION
  Report Type: 
  Country: None (occurrence: None)
  Receive Date: 20110201
  Receipt Date: 20110128
  Transmission Date: 20110831
  Serious: No
  Sender: FDA-Public Use
  Company Number: US-PFIZER INC-2011020890

PATIENT
  Sex: Male
  Weight: 74.8 kg

DRUGS (3)
  1. HYDROCODONE [Concomitant]
     Dosage: UNK
  2. NEURONTIN [Suspect]
     Indication: NECK PAIN
     Dosage: 100 MG, DAILY
     Route: 048
     Dates: start: 20110125, end: 20110127
  3. LUNESTA [Concomitant]
     Dosage: UNK

REACTIONS (1)
  - INSOMNIA [None]
